FAERS Safety Report 14515083 (Version 1)
Quarter: 2018Q1

REPORT INFORMATION
  Report Type: Report from Study
  Country: US (occurrence: US)
  Receive Date: 20180209
  Receipt Date: 20180209
  Transmission Date: 20180509
  Serious: Yes (Death, Life-Threatening, Hospitalization)
  Sender: FDA-Public Use
  Company Number: PHHO2012US020928

PATIENT
  Age: 72 Year
  Sex: Male
  Weight: 72.7 kg

DRUGS (2)
  1. BENDAMUSTINE [Suspect]
     Active Substance: BENDAMUSTINE
     Indication: B-CELL LYMPHOMA
     Dosage: 90 MG/M2, CYCLIC
     Route: 042
     Dates: start: 20110922, end: 20120216
  2. ARZERRA [Suspect]
     Active Substance: OFATUMUMAB
     Indication: B-CELL LYMPHOMA
     Dosage: 1000 MG, CYCLIC
     Route: 042
     Dates: start: 20110921, end: 20120215

REACTIONS (1)
  - Pneumonia [Fatal]

NARRATIVE: CASE EVENT DATE: 20120417
